FAERS Safety Report 18904644 (Version 2)
Quarter: 2021Q4

REPORT INFORMATION
  Report Type: Spontaneous
  Country: US (occurrence: US)
  Receive Date: 20210217
  Receipt Date: 20211011
  Transmission Date: 20220303
  Serious: No
  Sender: FDA-Public Use
  Company Number: US-GW PHARMA-202102USGW00515

PATIENT

DRUGS (1)
  1. EPIDIOLEX [Suspect]
     Active Substance: CANNABIDIOL
     Indication: Lennox-Gastaut syndrome
     Dosage: 5MG/KG/DAY, 200 MILLIGRAM, BID
     Route: 048
     Dates: start: 202003

REACTIONS (2)
  - Weight increased [Unknown]
  - Hyperphagia [Unknown]
